FAERS Safety Report 16768344 (Version 3)
Quarter: 2019Q3

REPORT INFORMATION
  Report Type: Spontaneous
  Country: AU (occurrence: AU)
  Receive Date: 20190903
  Receipt Date: 20190910
  Transmission Date: 20191005
  Serious: Yes (Death, Hospitalization, Other)
  Sender: FDA-Public Use
  Company Number: AU-MYLANLABS-2019M1081109

PATIENT
  Age: 6 Decade
  Sex: Male

DRUGS (1)
  1. DEXAMETHASONE MYLAN [Suspect]
     Active Substance: DEXAMETHASONE
     Indication: PAIN
     Dosage: UNK
     Route: 042

REACTIONS (4)
  - Suspected product contamination [Unknown]
  - Respiratory distress [Unknown]
  - Death [Fatal]
  - Sepsis [Unknown]
